FAERS Safety Report 12252265 (Version 3)
Quarter: 2016Q2

REPORT INFORMATION
  Report Type: Spontaneous
  Country: US (occurrence: US)
  Receive Date: 20160411
  Receipt Date: 20160610
  Transmission Date: 20160815
  Serious: No
  Sender: FDA-Public Use
  Company Number: US-BAYER-2016-059910

PATIENT
  Age: 83 Year
  Sex: Female
  Weight: 50.34 kg

DRUGS (5)
  1. COLACE [Concomitant]
     Active Substance: DOCUSATE SODIUM
  2. CITRUCEL [Concomitant]
     Active Substance: METHYLCELLULOSE (4000 MPA.S)
     Dosage: UNK
  3. MIRALAX [Suspect]
     Active Substance: POLYETHYLENE GLYCOL 3350
     Indication: CONSTIPATION
     Dosage: UNK, PRN
     Route: 048
     Dates: start: 20160321
  4. MILK OF MAGNESIA ORIGINAL [Suspect]
     Active Substance: MAGNESIUM HYDROXIDE
     Indication: CONSTIPATION
     Dosage: UNK
     Route: 048
     Dates: end: 20160326
  5. GLYCERIN [GLYCEROL] [Concomitant]
     Dosage: UNK

REACTIONS (7)
  - Drug effect incomplete [None]
  - Underdose [None]
  - Product use issue [None]
  - Drug ineffective [None]
  - Drug dose omission [None]
  - Diarrhoea [None]
  - Product use issue [None]
